FAERS Safety Report 7587093-8 (Version None)
Quarter: 2011Q3

REPORT INFORMATION
  Report Type: 
  Country: None (occurrence: None)
  Receive Date: 20110701
  Receipt Date: 20110621
  Transmission Date: 20111222
  Serious: Yes (Hospitalization, Other)
  Sender: FDA-Public Use
  Company Number: US-BAYER-201037144NA

PATIENT
  Age: 43 Year
  Sex: Female
  Weight: 71 kg

DRUGS (6)
  1. YAZ [Suspect]
     Indication: PREMENSTRUAL SYNDROME
  2. YAZ [Suspect]
     Indication: ORAL CONTRACEPTION
     Dosage: UNK UNK, UNK
     Route: 048
     Dates: start: 20070301, end: 20070327
  3. YAZ [Suspect]
  4. SERTRALINE HYDROCHLORIDE [Concomitant]
     Dosage: 50 MG, UNK
     Route: 048
  5. LEVAQUIN [Concomitant]
     Dosage: UNK
     Dates: end: 20071127
  6. ORAL CONTRACEPTIVE NOS [Concomitant]
     Dosage: UNK
     Route: 048
     Dates: start: 19800101, end: 20080101

REACTIONS (1)
  - PULMONARY EMBOLISM [None]
